FAERS Safety Report 10963412 (Version 1)
Quarter: 2015Q1

REPORT INFORMATION
  Report Type: Spontaneous
  Country: US (occurrence: None)
  Receive Date: 20150326
  Receipt Date: 20150326
  Transmission Date: 20150721
  Serious: Yes (Other)
  Sender: FDA-Public Use
  Company Number: 2015030048

PATIENT
  Sex: Male
  Weight: 95.26 kg

DRUGS (2)
  1. EPHEDRINE [Concomitant]
     Active Substance: EPHEDRINE
  2. FELBATOL [Suspect]
     Active Substance: FELBAMATE
     Indication: GENERALISED TONIC-CLONIC SEIZURE
     Dates: start: 201111

REACTIONS (4)
  - Generalised tonic-clonic seizure [None]
  - Nephrolithiasis [None]
  - Drug dose omission [None]
  - Road traffic accident [None]
